FAERS Safety Report 8031776-2 (Version None)
Quarter: 2012Q1

REPORT INFORMATION
  Report Type: 
  Country: None (occurrence: None)
  Receive Date: 20120109
  Receipt Date: 20120103
  Transmission Date: 20120608
  Serious: Yes (Hospitalization)
  Sender: FDA-Public Use
  Company Number: US-US-EMD SERONO, INC.-7102267

PATIENT
  Sex: Female

DRUGS (2)
  1. REBIF [Suspect]
     Indication: PRODUCT USED FOR UNKNOWN INDICATION
     Route: 058
     Dates: start: 20100623
  2. UNSPECIFIED MEDICATION [Concomitant]
     Indication: CONVULSION

REACTIONS (2)
  - LUNG NEOPLASM MALIGNANT [None]
  - CONVULSION [None]
